FAERS Safety Report 7502106-7 (Version None)
Quarter: 2011Q2

REPORT INFORMATION
  Report Type: 
  Country: None (occurrence: None)
  Receive Date: 20110523
  Receipt Date: 20110523
  Transmission Date: 20111010
  Serious: Yes (Hospitalization)
  Sender: FDA-Public Use
  Company Number: None

PATIENT
  Sex: Female
  Weight: 43.7268 kg

DRUGS (12)
  1. BENTYL [Concomitant]
  2. SPIRIVA [Concomitant]
  3. BUDESONIDE [Concomitant]
  4. AFRIN [Concomitant]
  5. LORAZEPAM [Concomitant]
  6. CYMBALTA [Concomitant]
  7. PACLITAXEL [Suspect]
     Indication: BREAST CANCER METASTATIC
     Dosage: 142 MG WEEKLY IV
     Route: 042
     Dates: start: 20110316, end: 20110413
  8. ALBUTEROL SULFATE AUTOHALER [Concomitant]
  9. O2 [Concomitant]
  10. BROVANA [Concomitant]
  11. BEVACIZUMAN [Suspect]
     Indication: BREAST CANCER METASTATIC
     Dosage: 440 MG WEEKLY IV
     Route: 042
     Dates: start: 20110316, end: 20110413
  12. ZANTAC [Concomitant]

REACTIONS (13)
  - DYSTHYMIC DISORDER [None]
  - MALAISE [None]
  - DEPRESSION [None]
  - DECREASED APPETITE [None]
  - FATIGUE [None]
  - FAILURE TO THRIVE [None]
  - ODYNOPHAGIA [None]
  - SUPRAVENTRICULAR EXTRASYSTOLES [None]
  - ASTHENIA [None]
  - WHITE BLOOD CELL COUNT DECREASED [None]
  - MENTAL STATUS CHANGES [None]
  - HALLUCINATION [None]
  - PARAPARESIS [None]
